FAERS Safety Report 4824503-0 (Version None)
Quarter: 2005Q4

REPORT INFORMATION
  Report Type: 
  Country: None (occurrence: None)
  Receive Date: 20051110
  Receipt Date: 20051107
  Transmission Date: 20060501
  Serious: Yes (Death, Hospitalization)
  Sender: FDA-Public Use
  Company Number: AU-BOEHRINGER INGELHEIM PHARMACEUTICALS, INC.-2005-BP-19274AU

PATIENT
  Sex: Male

DRUGS (7)
  1. MOBIC [Suspect]
     Indication: ARTHRITIS
     Route: 048
  2. DIABEX [Suspect]
     Indication: DIABETES MELLITUS
     Route: 048
  3. GENTAMICIN SULFATE [Suspect]
     Indication: MASTOIDITIS
     Route: 042
     Dates: start: 20050418, end: 20050426
  4. AMARYL [Concomitant]
     Indication: DIABETES MELLITUS
  5. FUROSEMIDE [Concomitant]
  6. COLOXYL WITH SENNA [Concomitant]
  7. ZOLOFT [Concomitant]

REACTIONS (2)
  - CONDITION AGGRAVATED [None]
  - RENAL FAILURE CHRONIC [None]
